FAERS Safety Report 6525065-2 (Version None)
Quarter: 2009Q4

REPORT INFORMATION
  Report Type: 
  Country: None (occurrence: None)
  Receive Date: 20091223
  Receipt Date: 20091216
  Transmission Date: 20100525
  Serious: Yes (Hospitalization)
  Sender: FDA-Public Use
  Company Number: 001888

PATIENT
  Sex: Female

DRUGS (2)
  1. LACOSAMIDE [Suspect]
     Indication: EPILEPSY
     Dosage: 150 MG BID ORAL, (DOSE INCREASED ORAL)
     Route: 048
  2. LACOSAMIDE [Suspect]

REACTIONS (5)
  - CONTUSION [None]
  - CONVULSION [None]
  - FOOT FRACTURE [None]
  - ROAD TRAFFIC ACCIDENT [None]
  - SKIN LACERATION [None]
